FAERS Safety Report 7534566-X (Version None)
Quarter: 2011Q2

REPORT INFORMATION
  Report Type: 
  Country: None (occurrence: None)
  Receive Date: 20110609
  Receipt Date: 20090731
  Transmission Date: 20111010
  Serious: Yes (Death)
  Sender: FDA-Public Use
  Company Number: PHHY2009JP32995

PATIENT
  Sex: Male
  Weight: 56 kg

DRUGS (9)
  1. OXYCONTIN [Concomitant]
     Indication: MYELOFIBROSIS
     Dosage: 10 MG, UNK
     Route: 048
     Dates: start: 20081201, end: 20081229
  2. RED BLOOD CELLS, CONCENTRATED [Concomitant]
     Dosage: 2 UNITS EVERY WEEK
     Dates: start: 20071030, end: 20090104
  3. PLATELETS [Concomitant]
     Dosage: 10 UNITS EVERY WEEK
     Dates: start: 20070122, end: 20081031
  4. EXJADE [Suspect]
     Indication: IRON OVERLOAD
  5. EXJADE [Suspect]
     Indication: MYELOFIBROSIS
     Dosage: 1000 MG, QD
     Route: 048
     Dates: start: 20081028, end: 20081229
  6. PROMAC [Concomitant]
     Dosage: 1 G, UNK
     Route: 048
     Dates: start: 20071108
  7. NORVASC [Concomitant]
     Indication: MYELOFIBROSIS
     Dosage: 5 MG, UNK
     Route: 048
     Dates: start: 20081014, end: 20081229
  8. ALLOPURINOL [Concomitant]
     Indication: MYELOFIBROSIS
     Dosage: 200 MG, UNK
     Route: 048
     Dates: start: 20081024, end: 20081229
  9. METHYCOBAL [Concomitant]
     Indication: MYELOFIBROSIS
     Dosage: 1500 MG, UNK
     Route: 048
     Dates: start: 20081024, end: 20081229

REACTIONS (2)
  - CEREBRAL HAEMORRHAGE [None]
  - DISEASE PROGRESSION [None]
